FAERS Safety Report 7463502-X (Version None)
Quarter: 2011Q2

REPORT INFORMATION
  Report Type: 
  Country: None (occurrence: None)
  Receive Date: 20110506
  Receipt Date: 20110426
  Transmission Date: 20111010
  Serious: Yes (Other)
  Sender: FDA-Public Use
  Company Number: PHHY2011JP36192

PATIENT
  Age: 8 Year
  Sex: Female

DRUGS (1)
  1. GLEEVEC [Suspect]
     Indication: CHRONIC MYELOID LEUKAEMIA
     Route: 048

REACTIONS (6)
  - CONSTIPATION [None]
  - VOMITING [None]
  - BODY HEIGHT BELOW NORMAL [None]
  - HAEMATOCHEZIA [None]
  - RASH [None]
  - HEADACHE [None]
